FAERS Safety Report 6901600-7 (Version None)
Quarter: 2010Q3

REPORT INFORMATION
  Report Type: 
  Country: None (occurrence: None)
  Receive Date: 20100803
  Receipt Date: 20080227
  Transmission Date: 20110219
  Serious: Yes (Other)
  Sender: FDA-Public Use
  Company Number: US-PFIZER INC-2008019144

PATIENT
  Sex: Female
  Weight: 50.3 kg

DRUGS (9)
  1. LYRICA [Suspect]
     Indication: POST HERPETIC NEURALGIA
     Dosage: EVERYDAY
     Dates: start: 20070101, end: 20070101
  2. TOPROL-XL [Concomitant]
  3. SYNTHROID [Concomitant]
  4. ACETYLSALICYLIC ACID SRT [Concomitant]
  5. POTASSIUM [Concomitant]
  6. VITAMIN TAB [Concomitant]
  7. VYTORIN [Concomitant]
  8. MINIPRESS [Concomitant]
  9. CO-Q-10 [Concomitant]

REACTIONS (3)
  - DRY SKIN [None]
  - OCULAR VASCULAR DISORDER [None]
  - VISUAL IMPAIRMENT [None]
